FAERS Safety Report 5160432-3 (Version None)
Quarter: 2006Q4

REPORT INFORMATION
  Report Type: 
  Country: None (occurrence: None)
  Receive Date: 20061121
  Receipt Date: 20061113
  Transmission Date: 20070319
  Serious: Yes (Hospitalization)
  Sender: FDA-Public Use
  Company Number: REM_00297_2006

PATIENT
  Age: 75 Year
  Sex: Male
  Weight: 74 kg

DRUGS (7)
  1. REMODULIN [Suspect]
     Indication: PULMONARY HYPERTENSION
     Dosage: 12.5 NG/KG/MIN CONTINUOUS SC
     Route: 058
     Dates: start: 20060918, end: 20061113
  2. TRACLEER [Concomitant]
  3. ZYRTEC [Concomitant]
  4. NEXIUM [Concomitant]
  5. LASIX [Concomitant]
  6. PREDNISONE TAB [Concomitant]
  7. CELLCEPT [Concomitant]

REACTIONS (1)
  - SUICIDE ATTEMPT [None]
